FAERS Safety Report 5350020-8 (Version None)
Quarter: 2007Q2

REPORT INFORMATION
  Report Type: 
  Country: None (occurrence: None)
  Receive Date: 20070510
  Receipt Date: 20070124
  Transmission Date: 20071010
  Serious: Yes (Other)
  Sender: FDA-Public Use
  Company Number: 2007S1000066

PATIENT

DRUGS (4)
  1. CUBICIN [Suspect]
     Indication: BACTERAEMIA
     Dosage: 6 MG/KG
  2. CUBICIN [Suspect]
     Indication: OSTEOMYELITIS
     Dosage: 6 MG/KG
  3. VANCOMYCIN HCL [Concomitant]
  4. LINEZOLID [Concomitant]

REACTIONS (1)
  - PNEUMONIA STAPHYLOCOCCAL [None]
